FAERS Safety Report 16740629 (Version 1)
Quarter: 2019Q4

REPORT INFORMATION
  Report Type: Spontaneous
  Country: US (occurrence: US)
  Receive Date: 20190824
  Receipt Date: 20190824
  Transmission Date: 20200122
  Serious: No
  Sender: FDA-Public Use
  Company Number: None

PATIENT
  Age: 45 Year
  Sex: Male
  Weight: 111.6 kg

DRUGS (1)
  1. TESTOSTERONE CYPIONATE INJECTION USP [Suspect]
     Active Substance: TESTOSTERONE CYPIONATE
     Indication: ANDROGEN DEFICIENCY
     Dosage: ?          QUANTITY:10 INJECTION(S);OTHER FREQUENCY:1/2 MLTWICE A WEEK;?
     Route: 030
     Dates: start: 20190810, end: 20190823

REACTIONS (6)
  - Product contamination physical [None]
  - Musculoskeletal stiffness [None]
  - Nausea [None]
  - Myalgia [None]
  - Needle issue [None]
  - Injection site haemorrhage [None]

NARRATIVE: CASE EVENT DATE: 20190823
